FAERS Safety Report 5965511-6 (Version None)
Quarter: 2008Q4

REPORT INFORMATION
  Report Type: 
  Country: None (occurrence: None)
  Receive Date: 20081125
  Receipt Date: 20081119
  Transmission Date: 20090506
  Serious: Yes (Hospitalization)
  Sender: FDA-Public Use
  Company Number: NO-ABBOTT-08P-122-0488835-00

PATIENT
  Age: 47 Year
  Sex: Female

DRUGS (4)
  1. HUMIRA [Suspect]
     Indication: CROHN'S DISEASE
     Dosage: ONLY ONE DOSE WAS GIVEN
     Route: 058
     Dates: start: 20081001, end: 20081107
  2. HUMIRA [Suspect]
     Indication: FISTULA
  3. AZATHIOPRINE [Concomitant]
     Indication: CROHN'S DISEASE
     Dates: start: 20081001
  4. AZATHIOPRINE [Concomitant]
     Indication: FISTULA

REACTIONS (3)
  - RASH [None]
  - RENAL FAILURE [None]
  - SEPSIS [None]
